FAERS Safety Report 12370108 (Version 1)
Quarter: 2016Q2

REPORT INFORMATION
  Report Type: Spontaneous
  Country: DE (occurrence: DE)
  Receive Date: 20160516
  Receipt Date: 20160516
  Transmission Date: 20160815
  Serious: No
  Sender: FDA-Public Use
  Company Number: DE-BIOGEN-2013BI041813

PATIENT
  Age: 26 Year
  Sex: Female
  Weight: 68 kg

DRUGS (2)
  1. AVONEX [Suspect]
     Active Substance: INTERFERON BETA-1A
     Indication: MULTIPLE SCLEROSIS
     Route: 030
     Dates: start: 200701
  2. AVONEX [Suspect]
     Active Substance: INTERFERON BETA-1A
     Route: 030
     Dates: start: 200704, end: 201303

REACTIONS (1)
  - Pregnancy [Recovered/Resolved]

NARRATIVE: CASE EVENT DATE: 20130222
